FAERS Safety Report 8817836 (Version 3)
Quarter: 2013Q2

REPORT INFORMATION
  Report Type: Report from Study
  Country: US (occurrence: US)
  Receive Date: 20121004
  Receipt Date: 20130605
  Transmission Date: 20140414
  Serious: Yes (Hospitalization)
  Sender: FDA-Public Use
  Company Number: US-ROCHE-1137200

PATIENT
  Age: 55 Year
  Sex: Male

DRUGS (9)
  1. RIBAVIRIN [Suspect]
     Indication: HEPATITIS C
     Route: 048
     Dates: start: 20120726, end: 20120731
  2. DACLATASVIR [Suspect]
     Indication: HEPATITIS C
     Route: 048
     Dates: start: 20120726, end: 20120731
  3. FIDAXOMICIN [Suspect]
     Indication: HEPATITIS C
     Route: 048
     Dates: start: 20120726, end: 20120731
  4. HYDROCODONE BITARTRATE [Concomitant]
     Route: 065
     Dates: start: 20100101
  5. ACETAMINOPHEN [Concomitant]
     Route: 065
     Dates: start: 2010
  6. OXYCODONE [Concomitant]
  7. ASPIRIN [Concomitant]
  8. LOTRISONE [Concomitant]
  9. MORPHINE SULFATE [Concomitant]

REACTIONS (1)
  - Chest pain [Recovered/Resolved]
